FAERS Safety Report 9677497 (Version 1)
Quarter: 2013Q4

REPORT INFORMATION
  Report Type: Spontaneous
  Country: NL (occurrence: None)
  Receive Date: 20131107
  Receipt Date: 20131107
  Transmission Date: 20140711
  Serious: No
  Sender: FDA-Public Use
  Company Number: None

PATIENT
  Age: 236 Month
  Sex: Male

DRUGS (1)
  1. MAXALT [Suspect]
     Indication: HEADACHE
     Dosage: 1 AS NEEDED
     Route: 048
     Dates: start: 20110701, end: 20110730

REACTIONS (9)
  - Extra dose administered [None]
  - Blindness [None]
  - Heart rate decreased [None]
  - Respiratory rate decreased [None]
  - Panic attack [None]
  - Aphasia [None]
  - Hallucinations, mixed [None]
  - Confusional state [None]
  - Loss of consciousness [None]
